FAERS Safety Report 15249864 (Version 1)
Quarter: 2018Q3

REPORT INFORMATION
  Report Type: Spontaneous
  Country: US (occurrence: US)
  Receive Date: 20180716
  Receipt Date: 20180716
  Transmission Date: 20181010
  Serious: Yes (Other)
  Sender: FDA-Public Use
  Company Number: None

PATIENT
  Age: 33 Day
  Sex: Female

DRUGS (1)
  1. INJECTABLE PEDIATRIC MULTIVITAMIN [Suspect]
     Active Substance: VITAMINS

REACTIONS (2)
  - Heart rate increased [None]
  - Rash generalised [None]

NARRATIVE: CASE EVENT DATE: 20180618
